FAERS Safety Report 6340647-9 (Version None)
Quarter: 2009Q3

REPORT INFORMATION
  Report Type: 
  Country: None (occurrence: None)
  Receive Date: 20090904
  Receipt Date: 20090901
  Transmission Date: 20100115
  Serious: Yes (Hospitalization, Other)
  Sender: FDA-Public Use
  Company Number: JP-B.I. PHARMACEUTICALS,INC./RIDGEFIELD-2009-BP-08626NB

PATIENT
  Sex: Female
  Weight: 47.5 kg

DRUGS (3)
  1. MICARDIS [Suspect]
     Indication: HYPERTENSION
     Dosage: 40 MG
     Route: 048
     Dates: start: 20060404
  2. CRESTOR [Concomitant]
     Dosage: 2.5 MG
     Route: 048
     Dates: start: 20070423
  3. NOVOLIN R [Concomitant]
     Dosage: 28 U
     Route: 058
     Dates: start: 20040329

REACTIONS (1)
  - DIABETIC NEPHROPATHY [None]
